FAERS Safety Report 25028975 (Version 2)
Quarter: 2025Q1

REPORT INFORMATION
  Report Type: Report from Study
  Country: US (occurrence: US)
  Receive Date: 20250302
  Receipt Date: 20250311
  Transmission Date: 20250409
  Serious: Yes (Hospitalization, Other)
  Sender: TAKEDA
  Company Number: US-TAKEDA-2025TUS008096

PATIENT
  Sex: Male

DRUGS (1)
  1. MARIBAVIR [Suspect]
     Active Substance: MARIBAVIR
     Indication: Cytomegalovirus infection
     Dosage: 400 MILLIGRAM, BID
     Dates: start: 20250128

REACTIONS (10)
  - Cerebrovascular accident [Unknown]
  - Seizure [Unknown]
  - Aspiration [Unknown]
  - Dysphagia [Unknown]
  - Cytomegalovirus infection [Unknown]
  - Sedation [Unknown]
  - Fatigue [Unknown]
  - Taste disorder [Unknown]
  - Vomiting [Unknown]
  - Nausea [Unknown]
